FAERS Safety Report 9420670 (Version 4)
Quarter: 2014Q1

REPORT INFORMATION
  Report Type: Spontaneous
  Country: GB (occurrence: GB)
  Receive Date: 20130725
  Receipt Date: 20140324
  Transmission Date: 20141002
  Serious: Yes (Hospitalization)
  Sender: FDA-Public Use
  Company Number: PHFR2013GB004161

PATIENT
  Age: 52 Year
  Sex: Male

DRUGS (4)
  1. CLOZARIL [Suspect]
     Indication: SCHIZOPHRENIA
     Dosage: UNK
     Route: 048
     Dates: start: 20010701
  2. CLOZARIL [Suspect]
     Dosage: 500 MG, UNK
     Route: 048
     Dates: end: 20130701
  3. CLOZARIL [Suspect]
     Dosage: UNK
  4. SERTRALINE [Concomitant]
     Indication: DEPRESSION
     Dosage: 50 MG, UNK

REACTIONS (5)
  - Infection [Recovered/Resolved]
  - White blood cell count increased [Recovered/Resolved]
  - Neutrophil count increased [Recovered/Resolved]
  - Convulsion [Recovered/Resolved]
  - Differential white blood cell count abnormal [Recovered/Resolved]
